FAERS Safety Report 16088861 (Version 1)
Quarter: 2019Q1

REPORT INFORMATION
  Report Type: Report from Study
  Country: US (occurrence: US)
  Receive Date: 20190319
  Receipt Date: 20190319
  Transmission Date: 20190418
  Serious: Yes (Other)
  Sender: FDA-Public Use
  Company Number: PHEH2019US011421

PATIENT
  Age: 67 Year
  Sex: Male

DRUGS (1)
  1. COSENTYX [Suspect]
     Active Substance: SECUKINUMAB
     Indication: PSORIASIS
     Dosage: 300 MG, QMO
     Route: 058
     Dates: start: 20180327

REACTIONS (12)
  - Back disorder [Unknown]
  - Musculoskeletal disorder [Unknown]
  - Rash erythematous [Unknown]
  - Seizure [Unknown]
  - Gait disturbance [Recovering/Resolving]
  - Contusion [Unknown]
  - Tuberculosis [Unknown]
  - Arthralgia [Unknown]
  - Rash pruritic [Recovering/Resolving]
  - Hypoaesthesia [Unknown]
  - Myocardial infarction [Unknown]
  - Psoriasis [Unknown]

NARRATIVE: CASE EVENT DATE: 20190312
